FAERS Safety Report 11260121 (Version 1)
Quarter: 2015Q3

REPORT INFORMATION
  Report Type: Spontaneous
  Country: US (occurrence: US)
  Receive Date: 20150710
  Receipt Date: 20150710
  Transmission Date: 20151125
  Serious: Yes (Hospitalization)
  Sender: FDA-Public Use
  Company Number: US-BAYER-2015-370596

PATIENT
  Age: 81 Year
  Sex: Male

DRUGS (4)
  1. ADEMPAS [Suspect]
     Active Substance: RIOCIGUAT
     Indication: PULMONARY ARTERIAL HYPERTENSION
     Dosage: 2.5 MG, TID
     Route: 048
     Dates: start: 20150527
  2. WARFARIN [Suspect]
     Active Substance: WARFARIN
  3. PLAVIX [Suspect]
     Active Substance: CLOPIDOGREL BISULFATE
  4. ASPIRIN. [Suspect]
     Active Substance: ASPIRIN

REACTIONS (1)
  - Gastric haemorrhage [None]
